FAERS Safety Report 5869339-7 (Version None)
Quarter: 2008Q3

REPORT INFORMATION
  Report Type: 
  Country: None (occurrence: None)
  Receive Date: 20080828
  Receipt Date: 20080806
  Transmission Date: 20090109
  Serious: Yes (Hospitalization)
  Sender: FDA-Public Use
  Company Number: WAES 0808USA01423

PATIENT
  Age: 69 Year
  Sex: Male

DRUGS (3)
  1. CAP VORINOSTAT 400 MG [Suspect]
     Indication: ACUTE MYELOID LEUKAEMIA
     Dosage: 400 MG/DAILY/PO
     Route: 048
     Dates: start: 20080703, end: 20080716
  2. DECITABINE 20 MG/M[2] [Suspect]
     Dosage: 20 MG/M[2]/DAILY/IV
     Route: 042
     Dates: start: 20080703, end: 20080707
  3. LEVAQUIN [Suspect]
     Indication: INFECTION PROPHYLAXIS
     Dosage: 750 MG/DAILY/PO
     Route: 048
     Dates: start: 20080715, end: 20080731

REACTIONS (11)
  - BONE PAIN [None]
  - CONFUSIONAL STATE [None]
  - DEHYDRATION [None]
  - DISORIENTATION [None]
  - DIZZINESS [None]
  - DRUG TOXICITY [None]
  - HYPONATRAEMIA [None]
  - MENTAL STATUS CHANGES [None]
  - MOOD ALTERED [None]
  - MUSCLE SPASMS [None]
  - VISION BLURRED [None]
